FAERS Safety Report 9786040 (Version 3)
Quarter: 2014Q1

REPORT INFORMATION
  Report Type: Spontaneous
  Country: US (occurrence: None)
  Receive Date: 20131224
  Receipt Date: 20140131
  Transmission Date: 20141002
  Serious: Yes (Death, Hospitalization)
  Sender: FDA-Public Use
  Company Number: UTC-042153

PATIENT
  Age: 42 Year
  Sex: Male
  Weight: 88.6 kg

DRUGS (2)
  1. TYVASO [Suspect]
     Indication: COR PULMONALE CHRONIC
     Dosage: 18 TO 54 MCG ( 4 IN 1 D), INHALATION
     Route: 055
     Dates: start: 20130906
  2. TRACLEER ( BOSENTAN) (UNKNOWN) [Concomitant]

REACTIONS (6)
  - Death [None]
  - Sepsis [None]
  - Clostridium difficile colitis [None]
  - Pneumonia [None]
  - Upper gastrointestinal haemorrhage [None]
  - Hepatic cirrhosis [None]
